FAERS Safety Report 5427582-5 (Version None)
Quarter: 2007Q3

REPORT INFORMATION
  Report Type: 
  Country: None (occurrence: None)
  Receive Date: 20070828
  Receipt Date: 20070824
  Transmission Date: 20080115
  Serious: Yes (Life-Threatening, Hospitalization)
  Sender: FDA-Public Use
  Company Number: B0484435A

PATIENT
  Age: 86 Year
  Sex: Male

DRUGS (2)
  1. ARIXTRA [Suspect]
     Indication: DRUG USE FOR UNKNOWN INDICATION
     Dosage: 2.5MG PER DAY
     Route: 058
     Dates: start: 20070801, end: 20070808
  2. LOXONIN [Suspect]
     Indication: DRUG USE FOR UNKNOWN INDICATION
     Route: 065
     Dates: start: 20070801, end: 20070812

REACTIONS (3)
  - FAECES DISCOLOURED [None]
  - STOMACH DISCOMFORT [None]
  - UPPER GASTROINTESTINAL HAEMORRHAGE [None]
